FAERS Safety Report 26087993 (Version 1)
Quarter: 2025Q4

REPORT INFORMATION
  Report Type: Other
  Country: US (occurrence: US)
  Receive Date: 20251125
  Receipt Date: 20251125
  Transmission Date: 20260117
  Serious: No
  Sender: TRAVERE THERAPEUTICS
  Company Number: US-TRAVERE-2025TVT02129

PATIENT
  Age: 43 Year
  Sex: Female

DRUGS (1)
  1. FILSPARI [Suspect]
     Active Substance: SPARSENTAN
     Indication: IgA nephropathy
     Route: 048
     Dates: start: 20251027

REACTIONS (4)
  - Headache [Unknown]
  - Hyperhidrosis [Unknown]
  - Burning sensation [Unknown]
  - Asthenia [None]

NARRATIVE: CASE EVENT DATE: 20251027
